FAERS Safety Report 6256743-0 (Version None)
Quarter: 2009Q3

REPORT INFORMATION
  Report Type: 
  Country: None (occurrence: None)
  Receive Date: 20090706
  Receipt Date: 20090625
  Transmission Date: 20100115
  Serious: Yes (Other)
  Sender: FDA-Public Use
  Company Number: US-JNJFOC-20060204993

PATIENT
  Sex: Male
  Weight: 102.51 kg

DRUGS (3)
  1. RISPERDAL [Suspect]
     Indication: DEPRESSION
     Route: 065
  2. ZYPREXA [Suspect]
     Indication: DEPRESSION
  3. SEROQUEL [Suspect]
     Indication: SLEEP DISORDER
     Route: 065

REACTIONS (1)
  - DIABETES MELLITUS [None]
